FAERS Safety Report 21098613 (Version 2)
Quarter: 2022Q3

REPORT INFORMATION
  Report Type: Report from Study
  Country: JP (occurrence: JP)
  Receive Date: 20220719
  Receipt Date: 20220802
  Transmission Date: 20221027
  Serious: Yes (Death)
  Sender: FDA-Public Use
  Company Number: JP-ASTELLAS-2022JP010381

PATIENT
  Age: 77 Year
  Sex: Male

DRUGS (32)
  1. ENFORTUMAB VEDOTIN [Suspect]
     Active Substance: ENFORTUMAB VEDOTIN
     Indication: Transitional cell carcinoma
     Dosage: 1.25 MG/KG, DAY1, 8, 15/1 CYCLE 28 DAYS
     Route: 041
     Dates: start: 20190626, end: 20190731
  2. ENFORTUMAB VEDOTIN [Suspect]
     Active Substance: ENFORTUMAB VEDOTIN
     Dosage: 1.0 MG/KG, DAY1, 8, 15/1 CYCLE 28 DAYS
     Route: 041
     Dates: start: 20190801, end: 20200812
  3. ENFORTUMAB VEDOTIN [Suspect]
     Active Substance: ENFORTUMAB VEDOTIN
     Dosage: 0.75 MG/KG, DAY1, 8, 15/1 CYCLE 28 DAYS
     Route: 041
     Dates: start: 20200813
  4. PREGABALIN [Concomitant]
     Active Substance: PREGABALIN
     Indication: Lumbar spinal stenosis
     Dosage: UNK UNK, UNKNOWN FREQ.
     Route: 048
     Dates: start: 20130515
  5. PREGABALIN [Concomitant]
     Active Substance: PREGABALIN
     Indication: Peripheral sensory neuropathy
     Dosage: UNK, UNK, UNKNOWN FREQ.
     Route: 048
     Dates: start: 20200619
  6. SALAGEN [Concomitant]
     Active Substance: PILOCARPINE HYDROCHLORIDE
     Indication: Dry mouth
     Route: 048
     Dates: start: 20130629
  7. NIFEDIPINE [Concomitant]
     Active Substance: NIFEDIPINE
     Indication: Hypertension
     Route: 048
     Dates: start: 20141224
  8. NICORANDIL [Concomitant]
     Active Substance: NICORANDIL
     Indication: Angina pectoris
     Route: 048
     Dates: start: 20141224
  9. ENALAPRIL MALEATE [Concomitant]
     Active Substance: ENALAPRIL MALEATE
     Indication: Hypertension
     Route: 048
     Dates: start: 20141224
  10. LEVOTHYROXINE SODIUM [Concomitant]
     Active Substance: LEVOTHYROXINE SODIUM
     Indication: Hypothyroidism
     Route: 048
     Dates: start: 20150417
  11. BEZAFIBRATE [Concomitant]
     Active Substance: BEZAFIBRATE
     Indication: Hyperlipidaemia
     Route: 048
     Dates: start: 20150731
  12. CARBOCYSTEINE [Concomitant]
     Active Substance: CARBOCYSTEINE
     Indication: Dry mouth
     Route: 048
     Dates: start: 20151225
  13. ISOSORBIDE MONONITRATE [Concomitant]
     Active Substance: ISOSORBIDE MONONITRATE
     Indication: Angina pectoris
     Route: 048
     Dates: start: 20160212
  14. ETIZOLAM [Concomitant]
     Active Substance: ETIZOLAM
     Indication: Insomnia
     Dosage: 0.5 MG, ONCE DAILY
     Route: 048
     Dates: start: 20160212
  15. LOXOPROFEN SODIUM DIHYDRATE [Concomitant]
     Active Substance: LOXOPROFEN SODIUM DIHYDRATE
     Indication: Lumbar spinal stenosis
     Dosage: UNK UNK, UNKNOWN FREQ.
     Route: 048
     Dates: start: 20160903
  16. REBAMIPIDE [Concomitant]
     Active Substance: REBAMIPIDE
     Indication: Gastric mucosal lesion
     Dosage: UNK UNK, UNKNOWN FREQ.
     Route: 048
     Dates: start: 20160903
  17. MAGNESIUM OXIDE [Concomitant]
     Active Substance: MAGNESIUM OXIDE
     Indication: Constipation
     Route: 048
     Dates: start: 20180627
  18. HERBALS [Concomitant]
     Active Substance: HERBALS
     Indication: Constipation
     Dosage: UNK UNK, UNKNOWN FREQ.
     Route: 048
     Dates: start: 20181122
  19. TRAMADOL [Concomitant]
     Active Substance: TRAMADOL
     Indication: Lumbar spinal stenosis
     Dosage: UNK UNK, UNKNOWN FREQ.
     Route: 048
     Dates: start: 20190627
  20. PREDONINE [Concomitant]
     Active Substance: PREDNISOLONE
     Indication: Rash
     Route: 048
     Dates: start: 20190729
  21. PREDONINE [Concomitant]
     Active Substance: PREDNISOLONE
     Indication: Prophylaxis
  22. LANSOPRAZOLE [Concomitant]
     Active Substance: LANSOPRAZOLE
     Indication: Gastric mucosal lesion
     Route: 048
     Dates: start: 20190801
  23. GENTAMICIN SULFATE [Concomitant]
     Active Substance: GENTAMICIN SULFATE
     Indication: Paronychia
     Dosage: UNK UNK, UNKNOWN FREQ.
     Route: 061
     Dates: start: 20190913
  24. SODIUM GUALENATE MONOHYDRATE [Concomitant]
     Active Substance: SODIUM GUALENATE MONOHYDRATE
     Indication: Stomatitis
     Dosage: UNK UNK, UNKNOWN FREQ.
     Route: 048
     Dates: start: 20190926
  25. HERBALS [Concomitant]
     Active Substance: HERBALS
     Indication: Peripheral sensory neuropathy
     Route: 048
     Dates: start: 20191107
  26. DIQUAFOSOL TETRASODIUM [Concomitant]
     Active Substance: DIQUAFOSOL TETRASODIUM
     Indication: Eye pain
     Dosage: UNK UNK, UNKNOWN FREQ.
     Route: 047
     Dates: start: 20191204
  27. BROMFENAC SODIUM HYDRATE [Concomitant]
     Indication: Cataract operation
     Dosage: UNK UNK, UNKNOWN FREQ.
     Route: 047
     Dates: start: 20200507, end: 20200623
  28. BROMFENAC SODIUM HYDRATE [Concomitant]
     Dosage: UNK UNK, UNKNOWN FREQ.
     Route: 047
     Dates: start: 20200604
  29. MIROGABALIN BESYLATE [Concomitant]
     Active Substance: MIROGABALIN BESYLATE
     Indication: Peripheral sensory neuropathy
     Route: 048
     Dates: start: 20201105
  30. MIROGABALIN BESYLATE [Concomitant]
     Active Substance: MIROGABALIN BESYLATE
     Indication: Neuropathy peripheral
     Route: 048
     Dates: start: 20210415
  31. EDOXABAN TOSYLATE [Concomitant]
     Active Substance: EDOXABAN TOSYLATE
     Indication: Surgery
     Dosage: UNK UNK, UNKNOWN FREQ.
     Route: 048
     Dates: start: 20211001
  32. HEPARINOID [Concomitant]
     Indication: Dry skin
     Dosage: ADEQUATE DOSE, SEVERAL TIMES PER DAY
     Route: 062
     Dates: start: 20220630

REACTIONS (1)
  - Heat illness [Fatal]

NARRATIVE: CASE EVENT DATE: 20220705
